FAERS Safety Report 8668007 (Version 2)
Quarter: 2012Q4

REPORT INFORMATION
  Report Type: 
  Country: JP (occurrence: JP)
  Receive Date: 20120717
  Receipt Date: 20120926
  Transmission Date: 20130627
  Serious: Yes (Other)
  Sender: FDA-Public Use
  Company Number: JP-009507513-1207JPN004256

PATIENT

DRUGS (1)
  1. FOSAMAC TABLETS 35MG [Suspect]
     Dosage: 35 mg, qw
     Route: 048
     Dates: start: 2006, end: 201205

REACTIONS (1)
  - Femur fracture [Recovering/Resolving]
